FAERS Safety Report 4340292-0 (Version None)
Quarter: 2004Q2

REPORT INFORMATION
  Report Type: 
  Country: None (occurrence: None)
  Receive Date: 20040406
  Receipt Date: 20040324
  Transmission Date: 20050107
  Serious: No
  Sender: FDA-Public Use
  Company Number: ZLBIGIV/04/05/USA

PATIENT
  Age: 85 Year
  Sex: Male
  Weight: 84.369 kg

DRUGS (1)
  1. CARIMUNE NF (IMMUNOGLOBULIN HUMAN NORMAL) (SOLUTION) [Suspect]
     Indication: CHRONIC LYMPHOCYTIC LEUKAEMIA
     Dosage: 30 G, I.V.
     Route: 042
     Dates: start: 20040317, end: 20040317

REACTIONS (2)
  - CHILLS [None]
  - INFUSION RELATED REACTION [None]
